FAERS Safety Report 7394123-5 (Version None)
Quarter: 2011Q2

REPORT INFORMATION
  Report Type: 
  Country: None (occurrence: None)
  Receive Date: 20110405
  Receipt Date: 20110321
  Transmission Date: 20111010
  Serious: No
  Sender: FDA-Public Use
  Company Number: US-JNJFOC-20110309358

PATIENT
  Sex: Male
  Weight: 81.65 kg

DRUGS (2)
  1. INVEGA [Suspect]
     Indication: TOURETTE'S DISORDER
     Route: 048
  2. PAXIL [Concomitant]
     Route: 048

REACTIONS (2)
  - OFF LABEL USE [None]
  - AGGRESSION [None]
